FAERS Safety Report 14497278 (Version 1)
Quarter: 2018Q1

REPORT INFORMATION
  Report Type: Spontaneous
  Country: US (occurrence: US)
  Receive Date: 20180206
  Receipt Date: 20180206
  Transmission Date: 20180509
  Serious: No
  Sender: FDA-Public Use
  Company Number: None

PATIENT
  Sex: Female
  Weight: 67.31 kg

DRUGS (1)
  1. ESZOPICLONE 1MG [Suspect]
     Active Substance: ESZOPICLONE
     Indication: SYPHILIS
     Route: 048

REACTIONS (4)
  - Product substitution issue [None]
  - Nightmare [None]
  - Insomnia [None]
  - Headache [None]
